FAERS Safety Report 11585324 (Version 3)
Quarter: 2016Q1

REPORT INFORMATION
  Report Type: Spontaneous
  Country: US (occurrence: US)
  Receive Date: 20151001
  Receipt Date: 20160318
  Transmission Date: 20160525
  Serious: Yes (Death, Hospitalization)
  Sender: FDA-Public Use
  Company Number: US-TEVA-597681USA

PATIENT
  Age: 88 Year
  Sex: Female

DRUGS (6)
  1. HALOPERIDOL. [Suspect]
     Active Substance: HALOPERIDOL
     Indication: AGITATION
     Route: 065
  2. MEMANTINE HYDROCHLORIDE [Suspect]
     Active Substance: MEMANTINE HYDROCHLORIDE
     Indication: CONFUSIONAL STATE
  3. LORAZEPAM. [Suspect]
     Active Substance: LORAZEPAM
     Indication: CONFUSIONAL STATE
     Route: 065
  4. MEMANTINE HYDROCHLORIDE [Suspect]
     Active Substance: MEMANTINE HYDROCHLORIDE
     Indication: AGITATION
     Route: 065
  5. HALOPERIDOL. [Suspect]
     Active Substance: HALOPERIDOL
     Indication: CONFUSIONAL STATE
  6. LORAZEPAM. [Suspect]
     Active Substance: LORAZEPAM
     Indication: AGITATION

REACTIONS (9)
  - Malnutrition [Unknown]
  - Agitation [Unknown]
  - Nausea [Unknown]
  - Delirium [Unknown]
  - Dehydration [Unknown]
  - Hallucination [Unknown]
  - Nosocomial infection [Fatal]
  - Lethargy [Unknown]
  - Confusional state [Not Recovered/Not Resolved]
